FAERS Safety Report 5326709-3 (Version None)
Quarter: 2007Q2

REPORT INFORMATION
  Report Type: 
  Country: None (occurrence: None)
  Receive Date: 20070516
  Receipt Date: 20070509
  Transmission Date: 20071010
  Serious: Yes (Hospitalization, Disabling)
  Sender: FDA-Public Use
  Company Number: US-BOEHRINGER INGELHEIM PHARMACEUTICALS, INC.-2007-BP-03248BP

PATIENT
  Age: 69 Year
  Sex: Female

DRUGS (7)
  1. FLOMAX [Suspect]
     Indication: INCONTINENCE
     Route: 048
     Dates: start: 20060101
  2. VESICARE [Concomitant]
     Route: 048
  3. FOSAMAX [Concomitant]
     Route: 048
  4. ALEVE [Concomitant]
     Route: 048
  5. OSTEO BIFLEX TRIPLE STRENGTH [Concomitant]
  6. VIACTIVE [Concomitant]
  7. OTHER VITAMINS [Concomitant]

REACTIONS (4)
  - CATARACT [None]
  - FLOPPY IRIS SYNDROME [None]
  - MIOSIS [None]
  - RETINAL TEAR [None]
